FAERS Safety Report 16573141 (Version 2)
Quarter: 2019Q3

REPORT INFORMATION
  Report Type: Spontaneous
  Country: US (occurrence: US)
  Receive Date: 20190715
  Receipt Date: 20190930
  Transmission Date: 20191004
  Serious: Yes (Hospitalization, Other)
  Sender: FDA-Public Use
  Company Number: US-PFIZER INC-2019297453

PATIENT
  Age: 52 Year
  Sex: Male

DRUGS (1)
  1. XELJANZ XR [Suspect]
     Active Substance: TOFACITINIB CITRATE
     Dosage: 11 MG, UNK (X30)
     Dates: start: 20190618, end: 20190901

REACTIONS (5)
  - Back disorder [Unknown]
  - Arthropathy [Unknown]
  - Arthritis infective [Unknown]
  - Drug ineffective [Unknown]
  - Pain [Unknown]

NARRATIVE: CASE EVENT DATE: 2019
